FAERS Safety Report 24818755 (Version 1)
Quarter: 2025Q1

REPORT INFORMATION
  Report Type: Report from Study
  Country: ES (occurrence: ES)
  Receive Date: 20250108
  Receipt Date: 20250108
  Transmission Date: 20250408
  Serious: Yes (Other)
  Sender: ASCEND THERAPEUTICS US, LLC
  Company Number: ES-Ascend Therapeutics US, LLC-2168640

PATIENT
  Sex: Male

DRUGS (2)
  1. ANDROGEL [Suspect]
     Active Substance: TESTOSTERONE
     Indication: Hypogonadism
  2. TESTOSTERONE [Suspect]
     Active Substance: TESTOSTERONE

REACTIONS (4)
  - Ischaemic stroke [Unknown]
  - Polycythaemia [Unknown]
  - Superficial vein thrombosis [Unknown]
  - Atrial fibrillation [Unknown]
